FAERS Safety Report 5545216-6 (Version None)
Quarter: 2007Q4

REPORT INFORMATION
  Report Type: 
  Country: None (occurrence: None)
  Receive Date: 20071121
  Receipt Date: 20070216
  Transmission Date: 20080405
  Serious: Yes (Other)
  Sender: FDA-Public Use
  Company Number: HQWYE164120FEB07

PATIENT
  Age: 61 Year
  Sex: Female
  Weight: 83.99 kg

DRUGS (4)
  1. PREMARIN [Suspect]
     Dosage: 0.5 G 2X PER 3 WK, VAGINAL
     Route: 067
     Dates: start: 19990101
  2. BEXTRA [Concomitant]
  3. CELEBREX [Concomitant]
  4. LIPITOR [Concomitant]

REACTIONS (2)
  - DEEP VEIN THROMBOSIS [None]
  - PAIN IN EXTREMITY [None]
